FAERS Safety Report 17444901 (Version 1)
Quarter: 2020Q1

REPORT INFORMATION
  Report Type: Spontaneous
  Country: FR (occurrence: FR)
  Receive Date: 20200221
  Receipt Date: 20200221
  Transmission Date: 20200409
  Serious: Yes (Hospitalization)
  Sender: FDA-Public Use
  Company Number: FR-TEVA-2020-FR-1189753

PATIENT
  Age: 53 Year
  Sex: Female
  Weight: 115.85 kg

DRUGS (5)
  1. TOUJEO OPTISET 100 UNIT?S/ML, SOLUTION INJECTABLE EN STYLO PR?REMPLI [Concomitant]
     Indication: TYPE 2 DIABETES MELLITUS
     Dosage: 45 IU
     Route: 058
  2. INDAPAMIDE. [Suspect]
     Active Substance: INDAPAMIDE
     Indication: HYPERTENSION
     Dosage: 2.5 MG
     Route: 048
     Dates: end: 202001
  3. PERINDOPRIL [Interacting]
     Active Substance: PERINDOPRIL
     Indication: HYPERTENSION
     Dosage: 10MG
     Route: 048
     Dates: end: 202001
  4. FLUDEX 1,5 MG, COMPRIM? PELLICUL? ? LIB?RATION PROLONG?E [Interacting]
     Active Substance: INDAPAMIDE
     Indication: HYPERTENSION
     Dosage: 1 DOSAGE FORM
     Route: 048
     Dates: end: 202001
  5. IMODIUM 2 MG, G?LULE [Concomitant]
     Indication: DIARRHOEA
     Dosage: 1 DOSAGE FORMS
     Route: 048
     Dates: start: 202001, end: 202001

REACTIONS (3)
  - Hyperkalaemia [Recovering/Resolving]
  - Drug interaction [Recovered/Resolved]
  - Acute kidney injury [Recovering/Resolving]

NARRATIVE: CASE EVENT DATE: 20200111
